FAERS Safety Report 4367866-5 (Version None)
Quarter: 2004Q2

REPORT INFORMATION
  Report Type: 
  Country: None (occurrence: None)
  Receive Date: 20040601
  Receipt Date: 20040601
  Transmission Date: 20050107
  Serious: Yes (Other)
  Sender: FDA-Public Use
  Company Number: None

PATIENT
  Age: 27 Year
  Sex: Male
  Weight: 108.8633 kg

DRUGS (2)
  1. ZOLOFT [Suspect]
     Indication: PANIC ATTACK
     Dosage: 25 MG 1 DAILY ORAL
     Route: 048
     Dates: start: 20040310, end: 20040317
  2. ZOLOFT [Suspect]
     Indication: PANIC ATTACK
     Dosage: 50 MG 1 DAILY ORAL
     Route: 048
     Dates: start: 20040318, end: 20040403

REACTIONS (2)
  - DIPLOPIA [None]
  - IMMOBILE [None]
